FAERS Safety Report 20669832 (Version 3)
Quarter: 2022Q2

REPORT INFORMATION
  Report Type: Spontaneous
  Country: AT (occurrence: AT)
  Receive Date: 20220404
  Receipt Date: 20220614
  Transmission Date: 20220721
  Serious: Yes (Death, Other)
  Sender: FDA-Public Use
  Company Number: None

PATIENT
  Age: 75 Year
  Sex: Female
  Weight: 51 kg

DRUGS (2)
  1. BRAFTOVI [Suspect]
     Active Substance: ENCORAFENIB
     Indication: Metastatic malignant melanoma
     Dosage: 6 DF, QD (1/DAY), BRAFTOVI 0-0-6
     Route: 048
     Dates: start: 20211229, end: 20220208
  2. MEKTOVI [Suspect]
     Active Substance: BINIMETINIB
     Indication: Metastatic malignant melanoma
     Dosage: 3 DF, BID (2/DAY),  MEKTOVI 3-0-3
     Route: 048
     Dates: start: 20211229, end: 20220208

REACTIONS (2)
  - Drug-induced liver injury [Fatal]
  - Hepatic failure [Fatal]

NARRATIVE: CASE EVENT DATE: 20220201
